FAERS Safety Report 6489962-9 (Version None)
Quarter: 2009Q4

REPORT INFORMATION
  Report Type: 
  Country: None (occurrence: None)
  Receive Date: 20091211
  Receipt Date: 20091201
  Transmission Date: 20100525
  Serious: Yes (Other)
  Sender: FDA-Public Use
  Company Number: PHEH2009US17377

PATIENT
  Sex: Female

DRUGS (6)
  1. EXJADE [Suspect]
     Dosage: 2000 MG, DAILY
     Route: 048
  2. AMITRIPTYLINE [Concomitant]
     Dosage: UNK
  3. PROZAC [Concomitant]
     Dosage: UNK
  4. PHENERGAN ^AVENTIS PHARMA^ [Concomitant]
     Dosage: UNK
  5. AMBIEN [Concomitant]
     Dosage: UNK
  6. TEMAZEPAM [Concomitant]
     Dosage: UNK

REACTIONS (2)
  - HEADACHE [None]
  - WEIGHT DECREASED [None]
